FAERS Safety Report 9528651 (Version 1)
Quarter: 2013Q1

REPORT INFORMATION
  Report Type: Spontaneous
  Country: US (occurrence: None)
  Receive Date: 20130320
  Receipt Date: 20130320
  Transmission Date: 20140127
  Serious: Yes (Death, Other)
  Sender: FDA-Public Use
  Company Number: 075096

PATIENT
  Age: 47 Year
  Sex: Male

DRUGS (3)
  1. ALPRAZOLAM [Suspect]
     Dosage: (INGST+UNK)
  2. MORPHINE [Suspect]
     Dosage: (INGST+UNK)
  3. VENLAFAXINE [Suspect]
     Dosage: (INFST+UNK)

REACTIONS (1)
  - Drug abuse [None]
